FAERS Safety Report 6593831-3 (Version None)
Quarter: 2010Q1

REPORT INFORMATION
  Report Type: 
  Country: None (occurrence: None)
  Receive Date: 20100222
  Receipt Date: 20100208
  Transmission Date: 20100710
  Serious: Yes (Hospitalization, Other)
  Sender: FDA-Public Use
  Company Number: BE-TYCO HEALTHCARE/MALLINCKRODT-T201000599

PATIENT
  Age: 44 Year
  Sex: Male

DRUGS (1)
  1. MORPHINE [Suspect]
     Dosage: UNK
     Route: 042

REACTIONS (5)
  - BLOOD PRESSURE SYSTOLIC INCREASED [None]
  - DRUG ABUSE [None]
  - PERIPHERAL EMBOLISM [None]
  - PERIPHERAL ISCHAEMIA [None]
  - VASCULAR PSEUDOANEURYSM [None]
